FAERS Safety Report 25167163 (Version 2)
Quarter: 2025Q2

REPORT INFORMATION
  Report Type: Report from Study
  Country: US (occurrence: US)
  Receive Date: 20250407
  Receipt Date: 20250502
  Transmission Date: 20250717
  Serious: Yes (Other)
  Sender: SANDOZ
  Company Number: US-SANDOZ-SDZ2025US021342

PATIENT
  Sex: Male
  Weight: 10 kg

DRUGS (1)
  1. OMNITROPE [Suspect]
     Active Substance: SOMATROPIN
     Indication: Short stature
     Dosage: 0.4 MG, QD, 5 MG/1.5 ML
     Route: 058
     Dates: start: 20250215, end: 20250302

REACTIONS (3)
  - Gastrostomy [Unknown]
  - Insulin-like growth factor increased [Unknown]
  - Vomiting [Not Recovered/Not Resolved]
